FAERS Safety Report 4320862-6 (Version None)
Quarter: 2004Q1

REPORT INFORMATION
  Report Type: 
  Country: None (occurrence: None)
  Receive Date: 20040318
  Receipt Date: 20040304
  Transmission Date: 20041129
  Serious: Yes (Disabling, Other)
  Sender: FDA-Public Use
  Company Number: 2004S1000653

PATIENT
  Age: 47 Year
  Sex: Female
  Weight: 49.8957 kg

DRUGS (4)
  1. BUSPIRONE HCL [Suspect]
     Indication: ANXIETY
     Dosage: 15 MG BID, THEN 30 MG (ONE DOSE), ORAL
     Route: 048
     Dates: start: 20030901, end: 20040226
  2. BUSPIRONE HYDROCHLORIDE TABLETS 15MG IVAX [Suspect]
     Indication: ANXIETY
     Dosage: 15 MG BID, ORAL
     Route: 048
     Dates: start: 20030901, end: 20040226
  3. ORAL CONTRACEPTIVE [Concomitant]
  4. TOLTERODINE (FOR BLADDER PROBLEMS) [Concomitant]

REACTIONS (5)
  - HEADACHE [None]
  - MUSCULOSKELETAL PAIN [None]
  - PAIN IN JAW [None]
  - PHARYNGOLARYNGEAL PAIN [None]
  - TOOTHACHE [None]
